FAERS Safety Report 8326388-7 (Version None)
Quarter: 2012Q2

REPORT INFORMATION
  Report Type: 
  Country: None (occurrence: None)
  Receive Date: 20120501
  Receipt Date: 20120420
  Transmission Date: 20120825
  Serious: Yes (Hospitalization)
  Sender: FDA-Public Use
  Company Number: US-ALEXION-A201200607

PATIENT
  Sex: Male

DRUGS (2)
  1. SOLIRIS [Suspect]
     Indication: HAEMOLYTIC URAEMIC SYNDROME
     Dosage: 900 MG, QW
     Route: 042
     Dates: start: 20120301, end: 20120405
  2. SOLIRIS [Suspect]
     Dosage: 1200 MG, Q2W
     Route: 042
     Dates: start: 20120405

REACTIONS (12)
  - HYPOXIA [None]
  - BACK PAIN [None]
  - HYPERTENSION [None]
  - HEART RATE INCREASED [None]
  - NAUSEA [None]
  - PNEUMONIA [None]
  - VOMITING [None]
  - CARDIAC FAILURE CONGESTIVE [None]
  - HAEMATEMESIS [None]
  - DEHYDRATION [None]
  - PULMONARY OEDEMA [None]
  - GROIN PAIN [None]
